APPROVED DRUG PRODUCT: CORTISONE ACETATE
Active Ingredient: CORTISONE ACETATE
Strength: 25MG
Dosage Form/Route: TABLET;ORAL
Application: A085736 | Product #001
Applicant: HEATHER DRUG CO INC
Approved: Approved Prior to Jan 1, 1982 | RLD: No | RS: No | Type: DISCN